FAERS Safety Report 11868848 (Version 2)
Quarter: 2016Q1

REPORT INFORMATION
  Report Type: Spontaneous
  Country: CA (occurrence: CA)
  Receive Date: 20151225
  Receipt Date: 20160328
  Transmission Date: 20160526
  Serious: Yes (Other)
  Sender: FDA-Public Use
  Company Number: CA-ROCHE-1684406

PATIENT
  Age: 66 Year
  Sex: Female

DRUGS (9)
  1. METFORMIN [Concomitant]
     Active Substance: METFORMIN HYDROCHLORIDE
  2. ACCUPRIL [Concomitant]
     Active Substance: QUINAPRIL HYDROCHLORIDE
     Route: 065
     Dates: start: 2013
  3. PREDNISONE. [Concomitant]
     Active Substance: PREDNISONE
  4. ZENHALE [Concomitant]
     Active Substance: FORMOTEROL FUMARATE\MOMETASONE FUROATE
  5. SPIRIVA [Concomitant]
     Active Substance: TIOTROPIUM BROMIDE MONOHYDRATE
     Route: 065
     Dates: start: 2014
  6. XOLAIR [Suspect]
     Active Substance: OMALIZUMAB
     Indication: ASTHMA
     Route: 058
     Dates: start: 20081208
  7. VENTOLIN [Concomitant]
     Active Substance: ALBUTEROL SULFATE
     Route: 065
  8. HYDRAZIDE (CANADA) [Concomitant]
  9. JANUVIA [Concomitant]
     Active Substance: SITAGLIPTIN PHOSPHATE
     Route: 065
     Dates: start: 2011

REACTIONS (13)
  - Pneumonia [Unknown]
  - Conjunctivitis [Unknown]
  - Immunoglobulins increased [Unknown]
  - Bronchitis [Unknown]
  - Infection [Unknown]
  - Eye symptom [Unknown]
  - Eosinophil count increased [Unknown]
  - Asthma [Unknown]
  - Forced expiratory volume decreased [Unknown]
  - Nasal septum deviation [Unknown]
  - Red blood cell count decreased [Unknown]
  - Urinary tract infection [Unknown]
  - Influenza [Unknown]

NARRATIVE: CASE EVENT DATE: 201509
